FAERS Safety Report 4627409-5 (Version None)
Quarter: 2005Q1

REPORT INFORMATION
  Report Type: 
  Country: None (occurrence: None)
  Receive Date: 20050331
  Receipt Date: 20050316
  Transmission Date: 20050727
  Serious: Yes (Hospitalization)
  Sender: FDA-Public Use
  Company Number: DSA_70607_2005

PATIENT
  Age: 33 Year
  Sex: Female

DRUGS (4)
  1. DARVOCET-N 100 [Suspect]
     Dosage: DF
  2. AVELOX [Suspect]
     Indication: ACUTE SINUSITIS
     Dosage: 400 MG PO
     Route: 048
     Dates: start: 20041122, end: 20041221
  3. AVELOX [Suspect]
     Indication: ACUTE SINUSITIS
     Dosage: 400 MG PO
     Route: 048
     Dates: start: 20050105
  4. DECADRON [Suspect]
     Dosage: DF

REACTIONS (4)
  - BIPOLAR DISORDER [None]
  - OVERDOSE [None]
  - PSYCHOTIC DISORDER [None]
  - SURGERY [None]
